FAERS Safety Report 7909003-3 (Version None)
Quarter: 2011Q4

REPORT INFORMATION
  Report Type: 
  Country: None (occurrence: None)
  Receive Date: 20111111
  Receipt Date: 20111109
  Transmission Date: 20120403
  Serious: Yes (Life-Threatening, Hospitalization)
  Sender: FDA-Public Use
  Company Number: PHHY2011BR90241

PATIENT
  Sex: Male

DRUGS (4)
  1. DIOVAN HCT [Suspect]
     Indication: HYPERTENSION
     Dosage: 1 DF, A DAY
     Route: 048
  2. DIAMICRON [Concomitant]
     Dosage: 30 MG, UNK
  3. INSULIN [Concomitant]
  4. MACRODANTIN [Concomitant]

REACTIONS (5)
  - DIABETES MELLITUS [None]
  - FEELING ABNORMAL [None]
  - URINARY TRACT INFECTION [None]
  - BLOOD PRESSURE DECREASED [None]
  - GENERAL PHYSICAL CONDITION ABNORMAL [None]
